FAERS Safety Report 20848506 (Version 1)
Quarter: 2022Q2

REPORT INFORMATION
  Report Type: Spontaneous
  Country: US (occurrence: US)
  Receive Date: 20220519
  Receipt Date: 20220519
  Transmission Date: 20220720
  Serious: Yes (Life-Threatening, Hospitalization, Other)
  Sender: FDA-Public Use
  Company Number: US-drreddys-SPO/USA/22/0150033

PATIENT
  Age: 31 Year
  Sex: Female

DRUGS (9)
  1. AMIODARONE HYDROCHLORIDE [Suspect]
     Active Substance: AMIODARONE HYDROCHLORIDE
     Indication: Atrial flutter
     Route: 042
  2. AMIODARONE HYDROCHLORIDE [Suspect]
     Active Substance: AMIODARONE HYDROCHLORIDE
     Route: 040
  3. FENTANYL CITRATE [Concomitant]
     Active Substance: FENTANYL CITRATE
     Indication: Sedation
  4. LORAZEPAM [Concomitant]
     Active Substance: LORAZEPAM
     Indication: Product used for unknown indication
  5. DIPRIVAN [Concomitant]
     Active Substance: PROPOFOL
     Indication: Alcohol withdrawal syndrome
  6. DIPRIVAN [Concomitant]
     Active Substance: PROPOFOL
     Indication: Sedation
  7. MIDAZOLAM [Concomitant]
     Active Substance: MIDAZOLAM
     Indication: Sedation
  8. MIDAZOLAM [Concomitant]
     Active Substance: MIDAZOLAM
     Indication: Alcohol withdrawal syndrome
  9. PHENYLEPHRINE [Concomitant]
     Active Substance: PHENYLEPHRINE HYDROCHLORIDE
     Indication: Product used for unknown indication

REACTIONS (2)
  - Acute hepatic failure [Recovered/Resolved]
  - Hepatotoxicity [Recovered/Resolved]
